FAERS Safety Report 7374515-0 (Version None)
Quarter: 2011Q1

REPORT INFORMATION
  Report Type: 
  Country: None (occurrence: None)
  Receive Date: 20110325
  Receipt Date: 20100202
  Transmission Date: 20110831
  Serious: No
  Sender: FDA-Public Use
  Company Number: US-MYLANLABS-2010S1001820

PATIENT
  Age: 64 Year
  Sex: Male
  Weight: 63.5 kg

DRUGS (6)
  1. CARAFATE [Concomitant]
     Indication: ABDOMINAL DISCOMFORT
     Dosage: BEFORE MEALS
     Route: 048
  2. OXYCODONE HCL AND ACETAMINOPHEN [Suspect]
     Route: 048
     Dates: start: 20040101
  3. LORAZEPAM [Suspect]
     Route: 048
     Dates: start: 19910101
  4. OXYCODONE HCL AND ACETAMINOPHEN [Suspect]
     Route: 048
     Dates: start: 20040101
  5. FENTANYL-100 [Suspect]
     Dosage: CHANGED Q72H
     Route: 062
     Dates: start: 20050101
  6. CIPRO [Concomitant]
     Indication: URINARY TRACT INFECTION
     Route: 048

REACTIONS (1)
  - DRUG SCREEN NEGATIVE [None]
